FAERS Safety Report 10884587 (Version 5)
Quarter: 2015Q2

REPORT INFORMATION
  Report Type: Report from Study
  Country: CA (occurrence: CA)
  Receive Date: 20150304
  Receipt Date: 20150512
  Transmission Date: 20150821
  Serious: Yes (Other)
  Sender: FDA-Public Use
  Company Number: CA-ABBVIE-15K-028-1354194-00

PATIENT
  Age: 43 Year
  Sex: Female
  Weight: 62.2 kg

DRUGS (10)
  1. CALCIUM [Concomitant]
     Active Substance: CALCIUM
     Indication: HIDRADENITIS
     Route: 048
  2. PREDNISONE. [Concomitant]
     Active Substance: PREDNISONE
     Indication: HIDRADENITIS
     Route: 048
     Dates: start: 2014
  3. LYDERM [Concomitant]
     Indication: ECZEMA
     Route: 061
     Dates: start: 2014
  4. CLOTRIMADERM [Concomitant]
     Indication: HIDRADENITIS
     Route: 061
     Dates: start: 2014
  5. HUMIRA [Suspect]
     Active Substance: ADALIMUMAB
     Route: 058
     Dates: start: 20150220, end: 20150403
  6. HUMIRA [Suspect]
     Active Substance: ADALIMUMAB
     Route: 058
     Dates: start: 20150508
  7. VITAMIN D3 [Concomitant]
     Active Substance: CHOLECALCIFEROL
     Indication: HIDRADENITIS
     Route: 048
     Dates: start: 2014
  8. HUMIRA [Suspect]
     Active Substance: ADALIMUMAB
     Indication: HIDRADENITIS
     Route: 058
     Dates: start: 20140326, end: 201501
  9. DOXYCYCLINE. [Concomitant]
     Active Substance: DOXYCYCLINE
     Indication: HIDRADENITIS
     Route: 048
  10. BENADRYL [Concomitant]
     Active Substance: DIPHENHYDRAMINE HYDROCHLORIDE
     Indication: ECZEMA
     Route: 048
     Dates: start: 2014

REACTIONS (3)
  - Procedural pain [Unknown]
  - Hidradenitis [Not Recovered/Not Resolved]
  - Hidradenitis [Recovering/Resolving]

NARRATIVE: CASE EVENT DATE: 201502
